FAERS Safety Report 23890388 (Version 1)
Quarter: 2024Q2

REPORT INFORMATION
  Report Type: Spontaneous
  Country: US (occurrence: US)
  Receive Date: 20240523
  Receipt Date: 20240523
  Transmission Date: 20240716
  Serious: Yes (Death, Other)
  Sender: FDA-Public Use
  Company Number: US-002147023-NVSC2024US109023

PATIENT
  Sex: Female

DRUGS (1)
  1. DABRAFENIB [Suspect]
     Active Substance: DABRAFENIB
     Indication: Ovarian cancer
     Dosage: 150 MG, BID
     Route: 048

REACTIONS (2)
  - Ovarian cancer [Fatal]
  - Malignant neoplasm progression [Fatal]
